FAERS Safety Report 4645460-6 (Version None)
Quarter: 2005Q2

REPORT INFORMATION
  Report Type: 
  Country: None (occurrence: None)
  Receive Date: 20050331
  Receipt Date: 20050215
  Transmission Date: 20051028
  Serious: Yes (Hospitalization)
  Sender: FDA-Public Use
  Company Number: 05P-163-0290704-00

PATIENT
  Age: 60 Year
  Sex: Female

DRUGS (9)
  1. HUMIRA [Suspect]
     Indication: RHEUMATOID ARTHRITIS
     Dosage: 40 MG, 1 IN 2 WK, SUBCUTANEOUS;  40 MG, 1 IN 2 WK, SUBCUTANEOUS;  40 MG, 1 IN 2 WK, SUBCUTANEOUS
     Route: 058
     Dates: end: 20050126
  2. HUMIRA [Suspect]
     Indication: RHEUMATOID ARTHRITIS
     Dosage: 40 MG, 1 IN 2 WK, SUBCUTANEOUS;  40 MG, 1 IN 2 WK, SUBCUTANEOUS;  40 MG, 1 IN 2 WK, SUBCUTANEOUS
     Route: 058
     Dates: start: 20040817
  3. PREDNISONE TAB [Concomitant]
  4. METHOTREXATE SODIUM [Concomitant]
  5. LEVOTHYROXINE SODIUM [Concomitant]
  6. VERAPAMIL [Concomitant]
  7. VITAMINS [Concomitant]
  8. ACTOS [Concomitant]
  9. HEPARIN-FRACTION, SODIUM SALT [Concomitant]

REACTIONS (5)
  - CHEST PAIN [None]
  - DYSPNOEA [None]
  - MYCOBACTERIUM AVIUM COMPLEX INFECTION [None]
  - UPPER RESPIRATORY TRACT INFECTION [None]
  - VAGINAL MYCOSIS [None]
